FAERS Safety Report 6170111-1 (Version None)
Quarter: 2009Q2

REPORT INFORMATION
  Report Type: 
  Country: None (occurrence: None)
  Receive Date: 20090428
  Receipt Date: 20090423
  Transmission Date: 20091009
  Serious: Yes (Hospitalization)
  Sender: FDA-Public Use
  Company Number: B0571326A

PATIENT
  Sex: Male

DRUGS (2)
  1. LAMICTAL [Suspect]
     Indication: EPILEPSY
     Dosage: 25MG PER DAY
     Route: 048
     Dates: start: 20090313, end: 20090323
  2. GARDENAL [Concomitant]
     Indication: EPILEPSY
     Route: 048
     Dates: start: 20090310

REACTIONS (3)
  - CHEILITIS [None]
  - DERMATITIS EXFOLIATIVE [None]
  - RASH MACULO-PAPULAR [None]
